FAERS Safety Report 23585870 (Version 1)
Quarter: 2024Q1

REPORT INFORMATION
  Report Type: Spontaneous
  Country: US (occurrence: US)
  Receive Date: 20240301
  Receipt Date: 20240301
  Transmission Date: 20240410
  Serious: No
  Sender: FDA-Public Use
  Company Number: US-FreseniusKabi-FK202403016

PATIENT
  Age: 69 Year
  Sex: Male
  Weight: 78.4 kg

DRUGS (3)
  1. SMOFLIPID [Suspect]
     Active Substance: FISH OIL\MEDIUM-CHAIN TRIGLYCERIDES\OLIVE OIL\SOYBEAN OIL
     Indication: Product used for unknown indication
     Dosage: EMULSION FOR INJECTION
  2. Central parenteral nutrition (CPN) [Concomitant]
     Indication: Parenteral nutrition
  3. Central parenteral nutrition (CPN) [Concomitant]
     Dates: start: 20240205, end: 20240221

REACTIONS (1)
  - Drug hypersensitivity [Recovered/Resolved]

NARRATIVE: CASE EVENT DATE: 20240131
